FAERS Safety Report 6535707-3 (Version None)
Quarter: 2010Q1

REPORT INFORMATION
  Report Type: 
  Country: None (occurrence: None)
  Receive Date: 20100113
  Receipt Date: 20100104
  Transmission Date: 20100710
  Serious: Yes (Other)
  Sender: FDA-Public Use
  Company Number: US-JNJFOC-20091001064

PATIENT
  Sex: Female
  Weight: 11.34 kg

DRUGS (4)
  1. CHILDREN'S TYLENOL LIQUID DYE-FREE CHERRY [Suspect]
     Route: 048
     Dates: start: 20090921, end: 20090925
  2. CHILDREN'S TYLENOL LIQUID DYE-FREE CHERRY [Suspect]
     Indication: TEETHING
     Route: 048
     Dates: start: 20090921, end: 20090925
  3. IBUPROFEN [Concomitant]
     Indication: PYREXIA
     Dosage: 5ML EVERY 6 HOURS AS NEEDED
  4. IBUPROFEN [Concomitant]
     Indication: PAIN
     Dosage: 5ML EVERY 6 HOURS AS NEEDED

REACTIONS (3)
  - BACTERIAL INFECTION [None]
  - PYREXIA [None]
  - TRANSMISSION OF AN INFECTIOUS AGENT VIA A MEDICINAL PRODUCT [None]
